FAERS Safety Report 6028582-7 (Version None)
Quarter: 2008Q4

REPORT INFORMATION
  Report Type: 
  Country: None (occurrence: None)
  Receive Date: 20081222
  Receipt Date: 20081031
  Transmission Date: 20090506
  Serious: No
  Sender: FDA-Public Use
  Company Number: US-WYE-H06656408

PATIENT
  Age: 47 Year
  Sex: Female
  Weight: 59.02 kg

DRUGS (4)
  1. PRISTIQ [Suspect]
     Indication: BIPOLAR DISORDER
     Dosage: 50 MG 1X PER 1 DAY, ORAL ; 50 MG 1X PER 1 DAY, ORAL ; 100 MG 1X PER 1 DAY, ORAL
     Route: 048
     Dates: start: 20080101, end: 20080101
  2. PRISTIQ [Suspect]
     Indication: BIPOLAR DISORDER
     Dosage: 50 MG 1X PER 1 DAY, ORAL ; 50 MG 1X PER 1 DAY, ORAL ; 100 MG 1X PER 1 DAY, ORAL
     Route: 048
     Dates: start: 20080801, end: 20080101
  3. PRISTIQ [Suspect]
     Indication: BIPOLAR DISORDER
     Dosage: 50 MG 1X PER 1 DAY, ORAL ; 50 MG 1X PER 1 DAY, ORAL ; 100 MG 1X PER 1 DAY, ORAL
     Route: 048
     Dates: start: 20080101
  4. LAMICTAL [Concomitant]

REACTIONS (10)
  - ABNORMAL DREAMS [None]
  - AGITATION [None]
  - BRUXISM [None]
  - DISTURBANCE IN ATTENTION [None]
  - ENERGY INCREASED [None]
  - INSOMNIA [None]
  - IRRITABILITY [None]
  - NAUSEA [None]
  - NERVOUSNESS [None]
  - PARAESTHESIA [None]
